FAERS Safety Report 10522947 (Version 1)
Quarter: 2014Q4

REPORT INFORMATION
  Report Type: Spontaneous
  Country: JP (occurrence: None)
  Receive Date: 20141010
  Receipt Date: 20141010
  Transmission Date: 20150528
  Serious: Yes (Hospitalization)
  Sender: FDA-Public Use
  Company Number: 2014SCAL000153

PATIENT
  Age: 26 Year
  Sex: Female

DRUGS (1)
  1. LITHIUM CARBONATE (LITHIUM CARBONATE) UNKNOWN [Suspect]
     Active Substance: LITHIUM CARBONATE
     Indication: PRODUCT USED FOR UNKNOWN INDICATION
     Dosage: 160 TABLETS OF 200MG

REACTIONS (4)
  - Toxicity to various agents [None]
  - Nausea [None]
  - Intentional overdose [None]
  - Suicide attempt [None]
